FAERS Safety Report 8969493 (Version 1)
Quarter: 2012Q4

REPORT INFORMATION
  Report Type: 
  Country: US (occurrence: US)
  Receive Date: 20121218
  Receipt Date: 20121218
  Transmission Date: 20130627
  Serious: Yes (Other)
  Sender: FDA-Public Use
  Company Number: US-BRISTOL-MYERS SQUIBB COMPANY-16257966

PATIENT
  Age: 13 Year
  Sex: Female

DRUGS (5)
  1. ABILIFY [Suspect]
     Indication: AUTISM
     Dosage: 1mg -3days,2.5mg 3 days,5 mg 7 days
     Route: 048
     Dates: start: 20111014, end: 20111027
  2. ABILIFY [Suspect]
     Indication: IRRITABILITY
     Dosage: 1mg -3days,2.5mg 3 days,5 mg 7 days
     Route: 048
     Dates: start: 20111014, end: 20111027
  3. PROZAC [Suspect]
  4. PROPRANOLOL [Suspect]
  5. VYVANSE [Suspect]

REACTIONS (2)
  - Neuroleptic malignant syndrome [Recovered/Resolved]
  - Akathisia [Recovered/Resolved]
